FAERS Safety Report 9719727 (Version 2)
Quarter: 2013Q4

REPORT INFORMATION
  Report Type: Spontaneous
  Country: US (occurrence: US)
  Receive Date: 20131128
  Receipt Date: 20131204
  Transmission Date: 20140711
  Serious: Yes (Congenital Anomaly, Other)
  Sender: FDA-Public Use
  Company Number: US-JNJFOC-20131109222

PATIENT
  Sex: Male
  Weight: 3.52 kg

DRUGS (4)
  1. FAMOTIDINE [Suspect]
     Route: 065
  2. FAMOTIDINE [Suspect]
     Indication: PRODUCT USED FOR UNKNOWN INDICATION
     Route: 065
     Dates: start: 20120905, end: 20121213
  3. ACETYLSALICYLIC ACID [Suspect]
     Indication: PRODUCT USED FOR UNKNOWN INDICATION
     Route: 065
     Dates: start: 20120905, end: 20121213
  4. VALSARTAN [Suspect]
     Indication: PRODUCT USED FOR UNKNOWN INDICATION
     Route: 065
     Dates: end: 20121213

REACTIONS (2)
  - Trisomy 21 [Not Recovered/Not Resolved]
  - Anal atresia [Recovering/Resolving]
